FAERS Safety Report 7092280-1 (Version None)
Quarter: 2010Q4

REPORT INFORMATION
  Report Type: 
  Country: None (occurrence: None)
  Receive Date: 20101109
  Receipt Date: 20101104
  Transmission Date: 20110411
  Serious: Yes (Hospitalization)
  Sender: FDA-Public Use
  Company Number: FR-MERCK-1011FRA00022

PATIENT
  Age: 87 Year
  Sex: Female

DRUGS (8)
  1. FOSAMAX [Suspect]
     Route: 048
     Dates: end: 20100801
  2. AMIODARONE HCL [Suspect]
     Indication: ATRIAL FIBRILLATION
     Route: 048
     Dates: start: 20050101, end: 20100812
  3. NITROGLYCERIN [Suspect]
     Route: 061
  4. FLUINDIONE [Suspect]
     Indication: ATRIAL FIBRILLATION
     Route: 048
     Dates: end: 20100817
  5. FUROSEMIDE AND SPIRONOLACTONE [Suspect]
     Route: 048
     Dates: end: 20100812
  6. RABEPRAZOLE SODIUM [Suspect]
     Route: 048
  7. LEVOTHYROXINE SODIUM [Suspect]
     Indication: HYPOTHYROIDISM
     Route: 048
  8. CALCIUM CARBONATE AND CHOLECALCIFEROL [Suspect]
     Route: 048

REACTIONS (10)
  - CARDIAC FAILURE [None]
  - FALL [None]
  - INTERSTITIAL LUNG DISEASE [None]
  - OEDEMA PERIPHERAL [None]
  - OVERDOSE [None]
  - PLEURAL EFFUSION [None]
  - PULMONARY FIBROSIS [None]
  - RESPIRATORY DISORDER [None]
  - RIB FRACTURE [None]
  - SPINAL FRACTURE [None]
